FAERS Safety Report 18291145 (Version 6)
Quarter: 2022Q1

REPORT INFORMATION
  Report Type: Spontaneous
  Country: US (occurrence: US)
  Receive Date: 20200921
  Receipt Date: 20220209
  Transmission Date: 20220423
  Serious: Yes (Other)
  Sender: FDA-Public Use
  Company Number: None

PATIENT
  Age: 54 Year
  Sex: Female

DRUGS (9)
  1. GILENYA [Suspect]
     Active Substance: FINGOLIMOD HYDROCHLORIDE
     Indication: Product used for unknown indication
     Dosage: 0.5 MG, QD
     Route: 048
     Dates: start: 201804, end: 20200511
  2. ACYCLOVIR [Concomitant]
     Active Substance: ACYCLOVIR
     Indication: Product used for unknown indication
     Dosage: 1 DOSAGE FORM (EVERY 12 HOURS)
     Route: 048
  3. AMPHETAMINE [Concomitant]
     Active Substance: AMPHETAMINE
     Indication: Product used for unknown indication
     Dosage: 1 DOSAGE FORM, TID
     Route: 048
  4. AMPYRA [Concomitant]
     Active Substance: DALFAMPRIDINE
     Indication: Product used for unknown indication
     Dosage: 1 DOSAGE FORM, BID
     Route: 048
  5. BACLOFEN [Concomitant]
     Active Substance: BACLOFEN
     Indication: Product used for unknown indication
     Dosage: 1 DOSAGE FORM, BID
     Route: 048
  6. INDOMETHACIN [Concomitant]
     Active Substance: INDOMETHACIN
     Indication: Product used for unknown indication
     Dosage: 1 DOSAGE FORM, TID (AS NEEDED)
     Route: 048
  7. METHOCARBAMOL [Concomitant]
     Active Substance: METHOCARBAMOL
     Indication: Product used for unknown indication
     Dosage: 2 DOSAGE FORM, TID (AS NEEDED)
     Route: 048
  8. TOPIRAMATE [Concomitant]
     Active Substance: TOPIRAMATE
     Indication: Product used for unknown indication
     Dosage: 1 DOSAGE FORM (AT BED TIME)
     Route: 048
  9. VITAMIN D3 [Concomitant]
     Active Substance: CHOLECALCIFEROL
     Indication: Product used for unknown indication
     Dosage: 300 IU (DAILY)
     Route: 048

REACTIONS (19)
  - Multiple sclerosis [Unknown]
  - Urinary retention [Unknown]
  - Cervical spinal stenosis [Unknown]
  - Immunosuppression [Unknown]
  - Sinusitis bacterial [Unknown]
  - Molluscum contagiosum [Recovering/Resolving]
  - Skin disorder [Unknown]
  - Pustule [Unknown]
  - Gait disturbance [Unknown]
  - Hypoaesthesia [Unknown]
  - Intervertebral disc disorder [Unknown]
  - Muscle spasms [Unknown]
  - Hypoaesthesia oral [Unknown]
  - Vitamin D deficiency [Unknown]
  - Headache [Unknown]
  - Fatigue [Unknown]
  - Migraine without aura [Unknown]
  - Nausea [Unknown]
  - Herpes zoster [Unknown]

NARRATIVE: CASE EVENT DATE: 20190724
